FAERS Safety Report 6321568-4 (Version None)
Quarter: 2009Q3

REPORT INFORMATION
  Report Type: 
  Country: None (occurrence: None)
  Receive Date: 20090820
  Receipt Date: 20090820
  Transmission Date: 20100115
  Serious: No
  Sender: FDA-Public Use
  Company Number: None

PATIENT

DRUGS (1)
  1. MAX BLOCK SPORTS SUNSCREEN [Suspect]

REACTIONS (2)
  - DRUG INEFFECTIVE [None]
  - SUNBURN [None]
